FAERS Safety Report 24675746 (Version 1)
Quarter: 2024Q4

REPORT INFORMATION
  Report Type: Spontaneous
  Country: CN (occurrence: CN)
  Receive Date: 20241128
  Receipt Date: 20241128
  Transmission Date: 20250114
  Serious: Yes (Other)
  Sender: PFIZER
  Company Number: CN-PFIZER INC-PV202400154638

PATIENT
  Sex: Female

DRUGS (1)
  1. XALKORI [Suspect]
     Active Substance: CRIZOTINIB
     Dosage: 250 MG, BID
     Route: 048
     Dates: start: 20230205, end: 20240520

REACTIONS (2)
  - Renal impairment [Unknown]
  - Hepatic function abnormal [Unknown]
